FAERS Safety Report 4651242-1 (Version None)
Quarter: 2005Q2

REPORT INFORMATION
  Report Type: 
  Country: None (occurrence: None)
  Receive Date: 20050331
  Receipt Date: 20050128
  Transmission Date: 20051028
  Serious: No
  Sender: FDA-Public Use
  Company Number: 05P-163-0288555-00

PATIENT
  Age: 61 Year
  Sex: Female
  Weight: 62.5964 kg

DRUGS (10)
  1. HUMIRA [Suspect]
     Indication: RHEUMATOID ARTHRITIS
     Dosage: 40 MG, 1 IN 2 WK, SUBCUTANEOUS;  40 MG, 1 IN 2 WK, SUBCUTANEOUS
     Route: 058
     Dates: start: 20030901, end: 20041001
  2. HUMIRA [Suspect]
     Indication: RHEUMATOID ARTHRITIS
     Dosage: 40 MG, 1 IN 2 WK, SUBCUTANEOUS;  40 MG, 1 IN 2 WK, SUBCUTANEOUS
     Route: 058
     Dates: start: 20050111
  3. ATENOLOL [Concomitant]
  4. METHOTREXATE [Concomitant]
  5. FOLIC ACID [Concomitant]
  6. CELECOXIB [Concomitant]
  7. FLUVASTATIN SODIUM [Concomitant]
  8. ISOSORBIDE [Concomitant]
  9. ALPRAZOLAM [Concomitant]
  10. HYDROCODONE [Concomitant]

REACTIONS (1)
  - RHEUMATOID ARTHRITIS [None]
